FAERS Safety Report 6544562-7 (Version None)
Quarter: 2010Q1

REPORT INFORMATION
  Report Type: 
  Country: None (occurrence: None)
  Receive Date: 20100121
  Receipt Date: 20100112
  Transmission Date: 20100710
  Serious: Yes (Hospitalization)
  Sender: FDA-Public Use
  Company Number: US-JNJFOC-20100103676

PATIENT
  Sex: Male
  Weight: 51 kg

DRUGS (8)
  1. INFLIXIMAB [Suspect]
     Indication: INFLAMMATORY BOWEL DISEASE
     Route: 042
  2. METHOTREXATE [Concomitant]
  3. DESOWEN [Concomitant]
  4. ZANTAC [Concomitant]
  5. NEXIUM [Concomitant]
  6. ERGOCALCIFEROL [Concomitant]
  7. FOLIC ACID [Concomitant]
  8. TYLENOL (CAPLET) [Concomitant]

REACTIONS (1)
  - INTESTINAL STENOSIS [None]
